FAERS Safety Report 9903578 (Version 3)
Quarter: 2014Q1

REPORT INFORMATION
  Report Type: Spontaneous
  Country: TR (occurrence: TR)
  Receive Date: 20140217
  Receipt Date: 20140313
  Transmission Date: 20141002
  Serious: Yes (Other)
  Sender: FDA-Public Use
  Company Number: TR-ABBVIE-14P-161-1201488-00

PATIENT
  Age: 31 Year
  Sex: Male
  Weight: 54 kg

DRUGS (4)
  1. HUMIRA [Suspect]
     Indication: PSORIASIS
     Dates: start: 201308
  2. CALCIMAX [Concomitant]
     Indication: PRODUCT USED FOR UNKNOWN INDICATION
  3. DEVIT-3 [Concomitant]
     Indication: PRODUCT USED FOR UNKNOWN INDICATION
  4. URSOFALK [Concomitant]
     Indication: PRODUCT USED FOR UNKNOWN INDICATION
     Dates: start: 201312

REACTIONS (1)
  - Epilepsy [Recovered/Resolved]
